FAERS Safety Report 21538597 (Version 2)
Quarter: 2022Q4

REPORT INFORMATION
  Report Type: Spontaneous
  Country: US (occurrence: US)
  Receive Date: 20221102
  Receipt Date: 20221110
  Transmission Date: 20230112
  Serious: Yes (Life-Threatening, Hospitalization, Other)
  Sender: FDA-Public Use
  Company Number: None

PATIENT
  Age: 37 Year
  Sex: Male

DRUGS (5)
  1. MORPHINE SULFATE [Suspect]
     Active Substance: MORPHINE SULFATE
     Indication: Product used for unknown indication
     Dosage: 15 GRAM, (ONE SIP OF HIS FRIEND^S MAID REGIMEN CONSISTING OF MICRONIZED DIGOXIN 100MG, DIAZEPAM 1 G,
     Route: 048
  2. DIAZEPAM [Suspect]
     Active Substance: DIAZEPAM
     Indication: Product used for unknown indication
     Dosage: 1 GRAM, (ONE SIP OF HIS FRIEND^S MAID REGIMEN CONSISTING OF MICRONIZED DIGOXIN 100MG, DIAZEPAM 1 G,
     Route: 048
  3. PHENOBARBITAL [Suspect]
     Active Substance: PHENOBARBITAL
     Indication: Product used for unknown indication
     Dosage: 5 GRAM, (ONE SIP OF HIS FRIEND^S MAID REGIMEN CONSISTING OF MICRONIZED DIGOXIN 100MG, DIAZEPAM 1 G,
     Route: 048
  4. AMITRIPTYLINE [Suspect]
     Active Substance: AMITRIPTYLINE
     Indication: Product used for unknown indication
     Dosage: 8 GRAM, (ONE SIP OF HIS FRIEND^S MAID REGIMEN CONSISTING OF MICRONIZED DIGOXIN 100MG, DIAZEPAM 1 G,
     Route: 048
  5. DIGOXIN [Suspect]
     Active Substance: DIGOXIN
     Indication: Product used for unknown indication
     Dosage: 100 MILLIGRAM, (ONE SIP OF HIS FRIEND^S MAID REGIMEN CONSISTING OF MICRONIZED DIGOXIN 100MG, DIAZEPA
     Route: 048

REACTIONS (10)
  - Coma [Recovered/Resolved]
  - Pneumonia aspiration [Recovered/Resolved]
  - Electrocardiogram PR prolongation [Recovered/Resolved]
  - Acute kidney injury [Recovered/Resolved]
  - Blood potassium increased [Recovered/Resolved]
  - Electrocardiogram QRS complex prolonged [Recovered/Resolved]
  - Bundle branch block right [Recovered/Resolved]
  - Electrocardiogram ST segment abnormal [Recovered/Resolved]
  - Respiratory depression [Recovered/Resolved]
  - Accidental exposure to product [Recovered/Resolved]
